FAERS Safety Report 21478340 (Version 1)
Quarter: 2022Q4

REPORT INFORMATION
  Report Type: Spontaneous
  Country: US (occurrence: None)
  Receive Date: 20221018
  Receipt Date: 20221018
  Transmission Date: 20230113
  Serious: No
  Sender: FDA-Public Use
  Company Number: None

PATIENT
  Age: 41 Year
  Sex: Female
  Weight: 112.5 kg

DRUGS (2)
  1. COSENTYX [Suspect]
     Active Substance: SECUKINUMAB
     Indication: Psoriasis
     Dosage: 300 MG/ML ONCE EVERY 4 WEEKS SUBCUTANEOUS?
     Route: 058
     Dates: start: 20220713
  2. COSENTYX [Concomitant]
     Active Substance: SECUKINUMAB
     Dates: start: 20220713

REACTIONS (2)
  - Rhinorrhoea [None]
  - Alopecia [None]

NARRATIVE: CASE EVENT DATE: 20221011
